FAERS Safety Report 12804172 (Version 1)
Quarter: 2016Q4

REPORT INFORMATION
  Report Type: Spontaneous
  Country: US (occurrence: US)
  Receive Date: 20161003
  Receipt Date: 20161003
  Transmission Date: 20170207
  Serious: Yes (Other)
  Sender: FDA-Public Use
  Company Number: US-TEVA-697856USA

PATIENT
  Age: 77 Year
  Sex: Female
  Weight: 65.76 kg

DRUGS (4)
  1. GUAIFENESIN W/ DEXTROMETHORPHAN [Suspect]
     Active Substance: DEXTROMETHORPHAN\GUAIFENESIN
     Route: 048
     Dates: start: 20160914, end: 20160914
  2. LIPID MODIFYING AGENTS [Concomitant]
     Active Substance: UNSPECIFIED INGREDIENT
  3. ANTIHYPERTENSIVES [Concomitant]
     Active Substance: UNSPECIFIED INGREDIENT
  4. ALLOPURINOL. [Concomitant]
     Active Substance: ALLOPURINOL

REACTIONS (2)
  - Diarrhoea haemorrhagic [Recovered/Resolved]
  - Medication error [Unknown]

NARRATIVE: CASE EVENT DATE: 20160914
